FAERS Safety Report 17173035 (Version 3)
Quarter: 2020Q1

REPORT INFORMATION
  Report Type: Spontaneous
  Country: US (occurrence: US)
  Receive Date: 20191219
  Receipt Date: 20200316
  Transmission Date: 20200409
  Serious: Yes (Other)
  Sender: FDA-Public Use
  Company Number: US-JNJFOC-20191218647

PATIENT
  Sex: Male

DRUGS (2)
  1. REMICADE [Suspect]
     Active Substance: INFLIXIMAB
     Indication: CROHN^S DISEASE
     Route: 042
  2. REMICADE [Suspect]
     Active Substance: INFLIXIMAB
     Route: 042

REACTIONS (9)
  - Product use issue [Unknown]
  - Therapeutic response decreased [Unknown]
  - Fistula [Unknown]
  - Off label use [Unknown]
  - Back pain [Unknown]
  - Abscess [Unknown]
  - Crohn^s disease [Unknown]
  - Product dose omission [Unknown]
  - Arthritis [Unknown]
